FAERS Safety Report 20291822 (Version 1)
Quarter: 2022Q1

REPORT INFORMATION
  Report Type: Spontaneous
  Country: US (occurrence: US)
  Receive Date: 20220104
  Receipt Date: 20220104
  Transmission Date: 20220423
  Serious: No
  Sender: FDA-Public Use
  Company Number: US-ABBVIE-21K-163-3739551-00

PATIENT
  Sex: Male

DRUGS (2)
  1. LUPRON DEPOT [Suspect]
     Active Substance: LEUPROLIDE ACETATE
     Indication: Prostate cancer
     Route: 050
     Dates: start: 2018
  2. COVID-19 VACCINE [Concomitant]
     Indication: Product used for unknown indication
     Dosage: VACCINE
     Dates: start: 20210117

REACTIONS (1)
  - Feeling hot [Not Recovered/Not Resolved]
